FAERS Safety Report 11886471 (Version 3)
Quarter: 2020Q2

REPORT INFORMATION
  Report Type: Spontaneous
  Country: US (occurrence: US)
  Receive Date: 20160104
  Receipt Date: 20200403
  Transmission Date: 20200713
  Serious: Yes (Death, Disabling, Other)
  Sender: FDA-Public Use
  Company Number: US-009507513-1601USA000465

PATIENT
  Sex: Female
  Weight: 94.79 kg

DRUGS (3)
  1. JANUVIA [Suspect]
     Active Substance: SITAGLIPTIN PHOSPHATE
     Dosage: UNK
     Route: 048
     Dates: start: 20080606, end: 201104
  2. BYETTA [Suspect]
     Active Substance: EXENATIDE
     Dosage: UNK
     Dates: start: 20071206, end: 200802
  3. VICTOZA [Suspect]
     Active Substance: LIRAGLUTIDE
     Dosage: UNK
     Dates: start: 200104, end: 201307

REACTIONS (17)
  - Septic shock [Fatal]
  - Hepatic neoplasm [Unknown]
  - Oedema peripheral [Unknown]
  - Acute kidney injury [Fatal]
  - Bronchogenic cyst [Unknown]
  - Biliary neoplasm [Unknown]
  - Malabsorption [Unknown]
  - Pericardial cyst [Unknown]
  - Adverse event [Unknown]
  - Gastroptosis [Unknown]
  - Pancreatic carcinoma [Fatal]
  - Gastrooesophageal reflux disease [Unknown]
  - Abdominal hernia [Unknown]
  - Ulcer [Unknown]
  - Hyperlipidaemia [Unknown]
  - Peripheral venous disease [Unknown]
  - Overweight [Unknown]

NARRATIVE: CASE EVENT DATE: 20110722
